FAERS Safety Report 14587125 (Version 1)
Quarter: 2018Q1

REPORT INFORMATION
  Report Type: Spontaneous
  Country: KR (occurrence: KR)
  Receive Date: 20180301
  Receipt Date: 20180301
  Transmission Date: 20180509
  Serious: Yes (Other)
  Sender: FDA-Public Use
  Company Number: KR-REGENERON PHARMACEUTICALS, INC.-2018-16020

PATIENT

DRUGS (1)
  1. EYLEA [Suspect]
     Active Substance: AFLIBERCEPT
     Indication: CHORIORETINAL DISORDER
     Dosage: UNK
     Dates: start: 20180121

REACTIONS (6)
  - Quality of life decreased [Unknown]
  - Axillary pain [Not Recovered/Not Resolved]
  - Musculoskeletal stiffness [Unknown]
  - Neck pain [Unknown]
  - Breast pain [Not Recovered/Not Resolved]
  - Bone pain [Not Recovered/Not Resolved]
